FAERS Safety Report 6698259-3 (Version None)
Quarter: 2010Q2

REPORT INFORMATION
  Report Type: 
  Country: None (occurrence: None)
  Receive Date: 20100427
  Receipt Date: 20100416
  Transmission Date: 20101027
  Serious: Yes (Hospitalization)
  Sender: FDA-Public Use
  Company Number: US-JNJFOC-20100405585

PATIENT
  Sex: Male
  Weight: 57 kg

DRUGS (15)
  1. REMICADE [Suspect]
     Indication: COLITIS ULCERATIVE
     Dosage: INTERMITTANT INFUSIONS
     Route: 042
  2. METHOTREXATE [Suspect]
     Indication: DRUG USE FOR UNKNOWN INDICATION
     Route: 048
  3. COLAZAL [Suspect]
     Indication: COLITIS ULCERATIVE
     Route: 048
  4. CIPROFLOXACIN [Suspect]
     Indication: COLITIS ULCERATIVE
     Route: 048
  5. FLAGYL [Suspect]
     Indication: COLITIS ULCERATIVE
     Route: 048
  6. ASACOL [Suspect]
     Indication: COLITIS ULCERATIVE
     Route: 048
  7. MEDROL [Suspect]
     Indication: COLITIS ULCERATIVE
     Route: 048
  8. AZATHIOPRINE [Suspect]
     Indication: COLITIS ULCERATIVE
     Route: 048
  9. AZATHIOPRINE [Suspect]
     Route: 048
  10. PREDNISONE [Suspect]
     Indication: COLITIS ULCERATIVE
     Dosage: VARIOUS DOSES FROM HIGH OF 60MG/DAY THEN TAPERED
     Route: 048
  11. TUMS [Concomitant]
     Route: 048
  12. CORTIFOAM [Concomitant]
     Indication: COLITIS ULCERATIVE
  13. BELLADONNA ALKALOIDS [Concomitant]
  14. MULTIPLE VITAMINS [Concomitant]
  15. IRON [Concomitant]
     Indication: NUTRITIONAL SUPPORT

REACTIONS (15)
  - ABDOMINAL PAIN [None]
  - BLOOD TEST ABNORMAL [None]
  - CUSHINGOID [None]
  - DECREASED APPETITE [None]
  - DIARRHOEA [None]
  - DISEASE PROGRESSION [None]
  - DRUG INEFFECTIVE [None]
  - FATIGUE [None]
  - GASTROENTERITIS VIRAL [None]
  - HAEMATOCHEZIA [None]
  - NAUSEA [None]
  - PYREXIA [None]
  - SKIN LESION [None]
  - VOMITING [None]
  - WEIGHT DECREASED [None]
